FAERS Safety Report 9494248 (Version 1)
Quarter: 2013Q3

REPORT INFORMATION
  Report Type: Spontaneous
  Country: US (occurrence: None)
  Receive Date: 20130828
  Receipt Date: 20130828
  Transmission Date: 20140515
  Serious: Yes (Other)
  Sender: FDA-Public Use
  Company Number: US-ZYDUS-002063

PATIENT
  Age: 62 Year
  Sex: Female

DRUGS (2)
  1. PAROXETINE (PAROXETINE) [Suspect]
     Indication: ANXIETY
     Dosage: 10.00 MG - 1.0 DAYS
  2. ZOLPIDEM (ZOLPIDEM) [Suspect]
     Indication: INSOMNIA
     Dosage: 10.00 MG - 1.0 DAYS

REACTIONS (5)
  - Major depression [None]
  - Psychotic disorder [None]
  - Homicide [None]
  - Delirium [None]
  - Drug interaction [None]
